FAERS Safety Report 5053943-2 (Version None)
Quarter: 2006Q3

REPORT INFORMATION
  Report Type: 
  Country: None (occurrence: None)
  Receive Date: 20060718
  Receipt Date: 20060510
  Transmission Date: 20061208
  Serious: Yes (Disabling)
  Sender: FDA-Public Use
  Company Number: US-MERCK-0605USA01873

PATIENT
  Age: 61 Year
  Sex: Male

DRUGS (2)
  1. ZESTRIL [Suspect]
     Indication: ESSENTIAL HYPERTENSION
     Route: 048
  2. CARDURA [Concomitant]
     Indication: ESSENTIAL HYPERTENSION
     Route: 065

REACTIONS (2)
  - BLOOD POTASSIUM ABNORMAL [None]
  - PAIN IN EXTREMITY [None]
